FAERS Safety Report 10084876 (Version 1)
Quarter: 2014Q2

REPORT INFORMATION
  Report Type: Report from Study
  Country: US (occurrence: US)
  Receive Date: 20140417
  Receipt Date: 20140417
  Transmission Date: 20141212
  Serious: Yes (Hospitalization, Other)
  Sender: FDA-Public Use
  Company Number: US-ABBVIE-14P-163-1223862-00

PATIENT
  Age: 76 Year
  Sex: Male
  Weight: 71.73 kg

DRUGS (6)
  1. HUMIRA [Suspect]
     Indication: RHEUMATOID ARTHRITIS
     Dates: start: 2010, end: 201308
  2. HUMIRA [Suspect]
     Dates: start: 201403
  3. PREDNISONE [Concomitant]
     Indication: PRODUCT USED FOR UNKNOWN INDICATION
  4. EYE VITAMIN [Concomitant]
     Indication: PRODUCT USED FOR UNKNOWN INDICATION
  5. VITAMIN D [Concomitant]
     Indication: PRODUCT USED FOR UNKNOWN INDICATION
  6. METHOTREXATE [Concomitant]
     Indication: PRODUCT USED FOR UNKNOWN INDICATION

REACTIONS (10)
  - Pain [Recovered/Resolved]
  - Abdominal mass [Recovered/Resolved]
  - Retroperitoneal abscess [Recovered/Resolved]
  - Retroperitoneal abscess [Recovered/Resolved]
  - Rash [Recovering/Resolving]
  - Mass [Recovered/Resolved]
  - Muscle spasms [Recovered/Resolved]
  - Peritoneal cyst [Recovered/Resolved]
  - Cholelithiasis [Not Recovered/Not Resolved]
  - Cholelithiasis [Not Recovered/Not Resolved]
